FAERS Safety Report 9118834 (Version 1)
Quarter: 2013Q1

REPORT INFORMATION
  Report Type: Spontaneous
  Country: US (occurrence: None)
  Receive Date: 20130221
  Receipt Date: 20130221
  Transmission Date: 20140127
  Serious: Yes (Other)
  Sender: FDA-Public Use
  Company Number: None

PATIENT
  Age: 74 Year
  Sex: Female
  Weight: 66.23 kg

DRUGS (1)
  1. ZETIA [Suspect]
     Indication: BLOOD CHOLESTEROL INCREASED
     Route: 048
     Dates: start: 20121207

REACTIONS (7)
  - Diarrhoea [None]
  - Muscle spasms [None]
  - Pain in extremity [None]
  - Musculoskeletal pain [None]
  - Neck pain [None]
  - Movement disorder [None]
  - Rash [None]
